FAERS Safety Report 4295443-3 (Version None)
Quarter: 2004Q1

REPORT INFORMATION
  Report Type: 
  Country: None (occurrence: None)
  Receive Date: 20040212
  Receipt Date: 20040129
  Transmission Date: 20041129
  Serious: Yes (Life-Threatening, Hospitalization, Disabling)
  Sender: FDA-Public Use
  Company Number: DE-JNJFOC-20040201566

PATIENT
  Age: 61 Year
  Sex: Female

DRUGS (9)
  1. TRAMAL (TRAMADOL HYDROCHLORIDE) TABLETS [Suspect]
     Dates: start: 20040102, end: 20040102
  2. LITHIUM CARBONATE [Suspect]
     Dates: start: 20040102, end: 20040102
  3. FLUVOXAMINE MALEATE [Suspect]
     Dates: start: 20040102, end: 20040102
  4. CLOTIAPINE (CLOTIAPINE) [Suspect]
     Dates: start: 20040102, end: 20040102
  5. PONSTAN (MEFENAMIC ACID) [Suspect]
     Dosage: ORAL
     Route: 048
     Dates: start: 20040102, end: 20040102
  6. FLURAZEPAM [Concomitant]
  7. INDERAL [Concomitant]
  8. CLORAZEPATE DIPOTASSIUM [Concomitant]
  9. DETRUSITOL (TOLTERODINE L-TARTRATE) [Concomitant]

REACTIONS (36)
  - ABDOMINAL DISTENSION [None]
  - ANAEMIA [None]
  - BLOOD UREA DECREASED [None]
  - BRADYCARDIA [None]
  - COGWHEEL RIGIDITY [None]
  - COMA [None]
  - DIARRHOEA [None]
  - DRUG INTERACTION [None]
  - DRUG TOXICITY [None]
  - ELECTROENCEPHALOGRAM ABNORMAL [None]
  - GASTRIC ULCER [None]
  - GASTRITIS HAEMORRHAGIC [None]
  - GASTROINTESTINAL HAEMORRHAGE [None]
  - HAEMATEMESIS [None]
  - HAEMODIALYSIS [None]
  - HEART RATE INCREASED [None]
  - HYPERREFLEXIA [None]
  - HYPERVENTILATION [None]
  - HYPOTENSION [None]
  - HYPOXIA [None]
  - METABOLIC ACIDOSIS [None]
  - MIOSIS [None]
  - MULTIPLE DRUG OVERDOSE [None]
  - MYOCLONUS [None]
  - OEDEMA PERIPHERAL [None]
  - OLIGURIA [None]
  - PETECHIAE [None]
  - PITTING OEDEMA [None]
  - PULSE PRESSURE DECREASED [None]
  - RENAL FAILURE ACUTE [None]
  - SCAR [None]
  - SEROTONIN SYNDROME [None]
  - SUICIDE ATTEMPT [None]
  - TACHYCARDIA [None]
  - TACHYPNOEA [None]
  - THROMBOCYTOPENIA [None]
